FAERS Safety Report 10063433 (Version 1)
Quarter: 2014Q2

REPORT INFORMATION
  Report Type: Spontaneous
  Country: GB (occurrence: GB)
  Receive Date: 20140407
  Receipt Date: 20140407
  Transmission Date: 20141212
  Serious: Yes (Hospitalization, Other)
  Sender: FDA-Public Use
  Company Number: GB-WATSON-2014-06373

PATIENT
  Age: 73 Year
  Sex: Female

DRUGS (1)
  1. ETODOLAC (WATSON LABORATORIES) [Suspect]
     Indication: POLYARTHRITIS
     Dosage: 600 MG, BID
     Route: 065

REACTIONS (2)
  - Acute hepatic failure [Recovered/Resolved]
  - Hepatic encephalopathy [Recovered/Resolved]
